FAERS Safety Report 13910914 (Version 1)
Quarter: 2017Q3

REPORT INFORMATION
  Report Type: Spontaneous
  Country: US (occurrence: None)
  Receive Date: 20170825
  Receipt Date: 20170825
  Transmission Date: 20171127
  Serious: Yes (Hospitalization)
  Sender: FDA-Public Use
  Company Number: None

PATIENT
  Age: 74 Year
  Sex: Female
  Weight: 62.6 kg

DRUGS (1)
  1. MEMANTINE HYDROCHLORIDE. [Suspect]
     Active Substance: MEMANTINE HYDROCHLORIDE
     Dates: end: 20170809

REACTIONS (8)
  - Asthenia [None]
  - Metastasis [None]
  - Disease progression [None]
  - Dysstasia [None]
  - Somnolence [None]
  - Hyponatraemia [None]
  - Confusional state [None]
  - Central nervous system lesion [None]

NARRATIVE: CASE EVENT DATE: 20170810
